FAERS Safety Report 5224919-7 (Version None)
Quarter: 2007Q1

REPORT INFORMATION
  Report Type: 
  Country: None (occurrence: None)
  Receive Date: 20070126
  Receipt Date: 20070112
  Transmission Date: 20070707
  Serious: Yes (Hospitalization)
  Sender: FDA-Public Use
  Company Number: SP-2007-003414

PATIENT
  Age: 66 Year
  Sex: Female

DRUGS (3)
  1. OLMETEC [Suspect]
     Indication: ESSENTIAL HYPERTENSION
     Dosage: 20 MG QD PO
     Route: 048
     Dates: start: 20060101
  2. BONVIVA [Suspect]
     Indication: OSTEOPOROSIS
     Dates: start: 20060101
  3. ADALAT [Suspect]
     Indication: ESSENTIAL HYPERTENSION
     Dosage: 30 MG QD PO
     Route: 048

REACTIONS (3)
  - ECZEMA [None]
  - EOSINOPHILIA [None]
  - PRURITUS [None]
